FAERS Safety Report 5185574-8 (Version None)
Quarter: 2006Q4

REPORT INFORMATION
  Report Type: 
  Country: None (occurrence: None)
  Receive Date: 20061220
  Receipt Date: 20060809
  Transmission Date: 20070319
  Serious: No
  Sender: FDA-Public Use
  Company Number: US-GLAXOSMITHKLINE-A0615971A

PATIENT
  Age: 72 Year
  Sex: Female

DRUGS (1)
  1. EQUATE NTS 21MG [Suspect]
     Dates: start: 20060729, end: 20060729

REACTIONS (3)
  - APPLICATION SITE ERYTHEMA [None]
  - APPLICATION SITE RASH [None]
  - APPLICATION SITE VESICLES [None]
